FAERS Safety Report 4731598-1 (Version None)
Quarter: 2005Q3

REPORT INFORMATION
  Report Type: 
  Country: None (occurrence: None)
  Receive Date: 20050722
  Receipt Date: 20050519
  Transmission Date: 20060218
  Serious: Yes (Hospitalization, Other)
  Sender: FDA-Public Use
  Company Number: USA-2005-0020322

PATIENT
  Age: 53 Year
  Sex: Male
  Weight: 90.7 kg

DRUGS (4)
  1. PALLADONE [Suspect]
     Indication: PAIN
     Dosage: 16 MG, Q24H
     Dates: start: 20050222, end: 20050315
  2. OXYCONTIN [Suspect]
     Indication: PAIN
     Dosage: 80 MG, Q12H
  3. CYMBALTA [Concomitant]
  4. SERAX [Concomitant]

REACTIONS (2)
  - DRUG ABUSER [None]
  - MEDICATION ERROR [None]
